FAERS Safety Report 16663604 (Version 1)
Quarter: 2019Q3

REPORT INFORMATION
  Report Type: Spontaneous
  Country: CN (occurrence: CN)
  Receive Date: 20190802
  Receipt Date: 20190802
  Transmission Date: 20191004
  Serious: Yes (Other)
  Sender: FDA-Public Use
  Company Number: CN-BAXTER-2019BAX015000

PATIENT
  Age: 62 Year
  Sex: Female
  Weight: 65 kg

DRUGS (4)
  1. 0.9% SODIUM CHLORIDE INJECTION [Suspect]
     Active Substance: SODIUM CHLORIDE
     Indication: MEDICATION DILUTION
     Dosage: DILUENT FOR CYCLOPHOSPHAMIDE OF 0.9 G
     Route: 041
     Dates: start: 20190712, end: 20190712
  2. ENDOXAN [Suspect]
     Active Substance: CYCLOPHOSPHAMIDE
     Indication: BREAST CANCER FEMALE
     Dosage: DILUTED WITH 0.9% SODIUM CHLORIDE INJECTION 50 ML
     Route: 041
     Dates: start: 20190712, end: 20190712
  3. AISU [Suspect]
     Active Substance: DOCETAXEL
     Indication: BREAST CANCER FEMALE
     Dosage: DILUTED WITH 0.9% SODIUM CHLORIDE INJECTION 250 ML
     Route: 041
     Dates: start: 20190712, end: 20190712
  4. 0.9% SODIUM CHLORIDE INJECTION [Suspect]
     Active Substance: SODIUM CHLORIDE
     Dosage: DILUENT FOR DOCETAXEL OF 120 MG
     Route: 041
     Dates: start: 20190712, end: 20190712

REACTIONS (1)
  - Bone marrow failure [Recovered/Resolved]

NARRATIVE: CASE EVENT DATE: 20190719
